FAERS Safety Report 19158375 (Version 1)
Quarter: 2021Q2

REPORT INFORMATION
  Report Type: Spontaneous
  Country: US (occurrence: US)
  Receive Date: 20210420
  Receipt Date: 20210420
  Transmission Date: 20210717
  Serious: No
  Sender: FDA-Public Use
  Company Number: US-TEVA-2021-US-1900925

PATIENT
  Age: 61 Year
  Sex: Male

DRUGS (2)
  1. ZOLPIDEM TARTRATE TEVA [Suspect]
     Active Substance: ZOLPIDEM TARTRATE
     Indication: INSOMNIA
     Route: 065
     Dates: start: 2017
  2. ZOLPIDEM TARTRATE TEVA [Suspect]
     Active Substance: ZOLPIDEM TARTRATE
     Route: 065
     Dates: start: 202103

REACTIONS (5)
  - Drug ineffective [Unknown]
  - Blood pressure increased [Unknown]
  - Feeling abnormal [Unknown]
  - Illness [Unknown]
  - Chest discomfort [Unknown]

NARRATIVE: CASE EVENT DATE: 202103
